FAERS Safety Report 10024677 (Version 1)
Quarter: 2014Q1

REPORT INFORMATION
  Report Type: Spontaneous
  Country: US (occurrence: None)
  Receive Date: 20140319
  Receipt Date: 20140319
  Transmission Date: 20141002
  Serious: Yes (Other)
  Sender: FDA-Public Use
  Company Number: None

PATIENT
  Sex: Female

DRUGS (2)
  1. NORVIR [Suspect]
     Indication: HIV INFECTION
     Route: 048
  2. SUSTIVA [Suspect]
     Indication: HIV INFECTION
     Route: 048

REACTIONS (3)
  - Nausea [None]
  - Treatment noncompliance [None]
  - Drug resistance [None]
